FAERS Safety Report 6303084-9 (Version None)
Quarter: 2009Q3

REPORT INFORMATION
  Report Type: 
  Country: None (occurrence: None)
  Receive Date: 20090810
  Receipt Date: 20090803
  Transmission Date: 20100115
  Serious: Yes (Hospitalization, Other)
  Sender: FDA-Public Use
  Company Number: US-ROCHE-645553

PATIENT
  Sex: Male

DRUGS (30)
  1. VALCYTE [Suspect]
     Route: 048
     Dates: start: 20090215, end: 20090429
  2. IMURAN [Suspect]
     Indication: DRUG USE FOR UNKNOWN INDICATION
     Route: 065
  3. SEPTRA [Suspect]
     Indication: DRUG USE FOR UNKNOWN INDICATION
     Route: 065
  4. THYMOGLOBULIN [Concomitant]
  5. LEVOTHYROXINE SODIUM [Concomitant]
  6. OMEPRAZOLE [Concomitant]
  7. MESALAMINE [Concomitant]
  8. TERAZOSIN HYDROCHLORIDE [Concomitant]
  9. VALPROIC ACID [Concomitant]
  10. LANTHANUM CARBONATE [Concomitant]
  11. PANTOPRAZOLE SODIUM [Concomitant]
  12. LEVOFLOXACIN [Concomitant]
  13. ONDANSETRON [Concomitant]
  14. FUROSEMIDE [Concomitant]
  15. ALBUMIN (HUMAN) [Concomitant]
  16. DIPHENHYDRAMINE HCL [Concomitant]
  17. ACETAMINOPHEN [Concomitant]
  18. METOPROLOL [Concomitant]
  19. MORPHINE SULFATE [Concomitant]
  20. BUMETANIDE [Concomitant]
  21. TEMAZEPAM [Concomitant]
  22. HYDRALAZINE HCL [Concomitant]
  23. HALOPERIDOL [Concomitant]
  24. TOLTERODINE TARTRATE [Concomitant]
  25. PROGRAF [Concomitant]
  26. PREDNISONE TAB [Concomitant]
  27. FOSAMAX [Concomitant]
  28. SYNTHROID [Concomitant]
  29. AMBIEN [Concomitant]
  30. MAGNESIUM OXIDE [Concomitant]

REACTIONS (14)
  - ANAEMIA [None]
  - BLOOD CREATININE INCREASED [None]
  - BLOOD THYROID STIMULATING HORMONE INCREASED [None]
  - CLOSTRIDIUM DIFFICILE COLITIS [None]
  - DECREASED APPETITE [None]
  - ENCEPHALOPATHY [None]
  - FAILURE TO THRIVE [None]
  - GRAFT DYSFUNCTION [None]
  - HYPERKALAEMIA [None]
  - NAUSEA [None]
  - PANCREATITIS [None]
  - RENAL TUBULAR NECROSIS [None]
  - SERUM FERRITIN INCREASED [None]
  - VOMITING [None]
